FAERS Safety Report 15951446 (Version 1)
Quarter: 2019Q1

REPORT INFORMATION
  Report Type: Spontaneous
  Country: US (occurrence: US)
  Receive Date: 20190212
  Receipt Date: 20190212
  Transmission Date: 20190417
  Serious: No
  Sender: FDA-Public Use
  Company Number: US-GLAXOSMITHKLINE-US2019018147

PATIENT
  Age: 65 Year
  Sex: Male

DRUGS (2)
  1. PROAIR HFA [Concomitant]
     Active Substance: ALBUTEROL SULFATE
  2. VENTOLIN HFA [Suspect]
     Active Substance: ALBUTEROL SULFATE
     Indication: MULTIPLE ALLERGIES
     Route: 055

REACTIONS (8)
  - Dysphonia [Unknown]
  - Asthenia [Unknown]
  - Wrong patient received product [Unknown]
  - Throat irritation [Unknown]
  - Product use in unapproved indication [Unknown]
  - Nasal discomfort [Unknown]
  - Eructation [Unknown]
  - Burning sensation [Unknown]

NARRATIVE: CASE EVENT DATE: 20190130
